FAERS Safety Report 5361700-2 (Version None)
Quarter: 2007Q2

REPORT INFORMATION
  Report Type: 
  Country: None (occurrence: None)
  Receive Date: 20070530
  Receipt Date: 20070327
  Transmission Date: 20071010
  Serious: No
  Sender: FDA-Public Use
  Company Number: 2007PV032478

PATIENT
  Age: 67 Year
  Sex: Female

DRUGS (4)
  1. BYETTA [Suspect]
     Indication: DIABETES MELLITUS NON-INSULIN-DEPENDENT
     Dosage: 5 MCG; QAM; SC, 10 MCG; QPM; SC, 5 MCG; BID; SC
     Route: 058
     Dates: start: 20070201, end: 20070312
  2. BYETTA [Suspect]
     Indication: DIABETES MELLITUS NON-INSULIN-DEPENDENT
     Dosage: 5 MCG; QAM; SC, 10 MCG; QPM; SC, 5 MCG; BID; SC
     Route: 058
     Dates: start: 20070313
  3. BYETTA [Suspect]
     Indication: DIABETES MELLITUS NON-INSULIN-DEPENDENT
     Dosage: 5 MCG; QAM; SC, 10 MCG; QPM; SC, 5 MCG; BID; SC
     Route: 058
     Dates: start: 20070313
  4. GLUCOPHAGE [Concomitant]

REACTIONS (2)
  - BLOOD GLUCOSE INCREASED [None]
  - DRUG INEFFECTIVE [None]
